FAERS Safety Report 17129455 (Version 1)
Quarter: 2019Q4

REPORT INFORMATION
  Report Type: Spontaneous
  Country: CO (occurrence: CO)
  Receive Date: 20191209
  Receipt Date: 20191209
  Transmission Date: 20200122
  Serious: Yes (Other)
  Sender: FDA-Public Use
  Company Number: CO-ROCHE-2485699

PATIENT
  Sex: Female

DRUGS (1)
  1. ACTEMRA [Suspect]
     Active Substance: TOCILIZUMAB
     Indication: RHEUMATOID ARTHRITIS
     Dosage: DATE OF MOST RECENT THERAPY: 21/OCT/2019
     Route: 065

REACTIONS (7)
  - Syncope [Unknown]
  - Pain [Unknown]
  - Pyrexia [Unknown]
  - Asthenia [Unknown]
  - Drug ineffective [Unknown]
  - Swelling [Unknown]
  - Rash erythematous [Unknown]
